FAERS Safety Report 7878457-3 (Version None)
Quarter: 2011Q4

REPORT INFORMATION
  Report Type: 
  Country: None (occurrence: None)
  Receive Date: 20111012
  Receipt Date: 20110829
  Transmission Date: 20120403
  Serious: Yes (Other)
  Sender: FDA-Public Use
  Company Number: 040377

PATIENT
  Sex: Male
  Weight: 127 kg

DRUGS (3)
  1. LEVOTHYROXINE SODIUM [Concomitant]
  2. HYDROCORTISONE [Concomitant]
  3. LEVETIRACETAM [Suspect]
     Indication: CONVULSION
     Dosage: 1000 MG, 2, 500 MG PILLS IN AM ORAL
     Route: 048
     Dates: start: 20090801

REACTIONS (8)
  - IRRITABILITY [None]
  - AGGRESSION [None]
  - HOSTILITY [None]
  - ABNORMAL BEHAVIOUR [None]
  - DEPRESSION [None]
  - SUICIDAL IDEATION [None]
  - ANGER [None]
  - AGITATION [None]
